FAERS Safety Report 6059296-5 (Version None)
Quarter: 2009Q1

REPORT INFORMATION
  Report Type: 
  Country: None (occurrence: None)
  Receive Date: 20090130
  Receipt Date: 20090120
  Transmission Date: 20090719
  Serious: Yes (Death, Hospitalization)
  Sender: FDA-Public Use
  Company Number: GB-ROCHE-609492

PATIENT
  Age: 80 Year
  Sex: Female

DRUGS (18)
  1. ROCEPHIN [Suspect]
     Route: 042
     Dates: start: 20080925, end: 20080928
  2. CLARITHROMYCIN [Suspect]
     Route: 042
     Dates: start: 20080925, end: 20080928
  3. CLARITHROMYCIN [Suspect]
     Route: 042
     Dates: start: 20080929, end: 20081005
  4. AMOXICILLIN + CLAVULANATE POTASSIUM [Suspect]
     Route: 048
     Dates: start: 20080929, end: 20081005
  5. ADCAL D3 [Concomitant]
     Route: 048
  6. COMBIVENT [Concomitant]
     Indication: CHRONIC OBSTRUCTIVE PULMONARY DISEASE
     Route: 055
  7. ENOXAPARIN [Concomitant]
     Indication: THROMBOSIS PROPHYLAXIS
     Route: 065
     Dates: start: 20080926, end: 20081010
  8. FRUSEMIDE [Concomitant]
     Route: 042
     Dates: start: 20080926, end: 20081001
  9. FRUSEMIDE [Concomitant]
     Dosage: ROUTE USED ORAL.
     Route: 042
  10. GLICLAZIDE [Concomitant]
     Route: 048
  11. INSULINE [Concomitant]
  12. METFORMIN [Concomitant]
     Route: 065
  13. OMEPRAZOLE [Concomitant]
     Route: 048
  14. OXYNORM [Concomitant]
     Route: 048
     Dates: start: 20081009
  15. PREDNISOLONE [Concomitant]
     Indication: CHRONIC OBSTRUCTIVE PULMONARY DISEASE
     Route: 048
     Dates: start: 20080925, end: 20080929
  16. SALBUTAMOL [Concomitant]
     Indication: CHRONIC OBSTRUCTIVE PULMONARY DISEASE
     Route: 055
  17. SERETIDE [Concomitant]
     Indication: CHRONIC OBSTRUCTIVE PULMONARY DISEASE
     Route: 055
  18. TIOTROPIUM BROMIDE [Concomitant]
     Indication: CHRONIC OBSTRUCTIVE PULMONARY DISEASE
     Route: 055

REACTIONS (3)
  - BLOOD CREATININE INCREASED [None]
  - CLOSTRIDIUM DIFFICILE COLITIS [None]
  - RENAL FAILURE ACUTE [None]
